FAERS Safety Report 10172913 (Version 1)
Quarter: 2014Q2

REPORT INFORMATION
  Report Type: Spontaneous
  Country: US (occurrence: None)
  Receive Date: 20140417
  Receipt Date: 20140417
  Transmission Date: 20141212
  Serious: No
  Sender: FDA-Public Use
  Company Number: E2B_00001658

PATIENT
  Age: 69 Year
  Sex: Female
  Weight: 91.17 kg

DRUGS (2)
  1. VALSARTAN AND HYDROCHLOROTHIAZIDE [Suspect]
     Indication: HYPERTENSION
     Dosage: 1 DOSAGE FORMS (1 DOSAGE FORMS, 1 IN 1 D), PER ORAL
     Route: 048
     Dates: start: 201312, end: 20140116
  2. ATORVASTATIN (LIPITOR) [Concomitant]

REACTIONS (3)
  - Rash [None]
  - Pruritus [None]
  - Product substitution issue [None]
